FAERS Safety Report 17794640 (Version 4)
Quarter: 2020Q4

REPORT INFORMATION
  Report Type: Report from Study
  Country: TW (occurrence: TW)
  Receive Date: 20200516
  Receipt Date: 20201028
  Transmission Date: 20210113
  Serious: Yes (Hospitalization, Other)
  Sender: FDA-Public Use
  Company Number: TW-TAKEDA-2020TUS022369

PATIENT
  Age: 53 Year
  Sex: Female

DRUGS (1)
  1. VEDOLIZUMAB [Suspect]
     Active Substance: VEDOLIZUMAB
     Indication: COLITIS ULCERATIVE
     Dosage: UNK
     Route: 042
     Dates: start: 20180806

REACTIONS (5)
  - Oedema peripheral [Unknown]
  - Colitis ulcerative [Not Recovered/Not Resolved]
  - Clostridium test positive [Recovered/Resolved]
  - Haematochezia [Recovering/Resolving]
  - Abdominal pain [Unknown]
